FAERS Safety Report 15066897 (Version 4)
Quarter: 2019Q1

REPORT INFORMATION
  Report Type: Spontaneous
  Country: JP (occurrence: JP)
  Receive Date: 20180626
  Receipt Date: 20190205
  Transmission Date: 20190417
  Serious: Yes (Death, Other)
  Sender: FDA-Public Use
  Company Number: JP-ELI_LILLY_AND_COMPANY-JP201806007641

PATIENT
  Age: 91 Year
  Sex: Female
  Weight: 36 kg

DRUGS (3)
  1. MINOMYCIN [Suspect]
     Active Substance: MINOCYCLINE HYDROCHLORIDE
     Indication: PROPHYLAXIS
     Dosage: 2 DF, DAILY
     Route: 048
     Dates: start: 20180606, end: 20180613
  2. LOXOPROFEN [Suspect]
     Active Substance: LOXOPROFEN
     Indication: CANCER PAIN
     Dosage: 2 DF, DAILY
     Route: 048
     Dates: end: 20180604
  3. ERBITUX [Suspect]
     Active Substance: CETUXIMAB
     Indication: GINGIVAL CANCER
     Dosage: 400 MG/M2, UNKNOWN
     Route: 041
     Dates: start: 20180606, end: 20180606

REACTIONS (6)
  - Cardiac arrest [Fatal]
  - Somnolence [Not Recovered/Not Resolved]
  - Anaemia [Fatal]
  - Malaise [Not Recovered/Not Resolved]
  - Gastrointestinal haemorrhage [Fatal]
  - Depressed level of consciousness [Not Recovered/Not Resolved]

NARRATIVE: CASE EVENT DATE: 20180609
